FAERS Safety Report 20907399 (Version 1)
Quarter: 2022Q2

REPORT INFORMATION
  Report Type: Spontaneous
  Country: CZ (occurrence: CZ)
  Receive Date: 20220602
  Receipt Date: 20220602
  Transmission Date: 20220721
  Serious: Yes (Other)
  Sender: FDA-Public Use
  Company Number: CZ-ROCHE-3093260

PATIENT
  Age: 62 Year
  Sex: Female

DRUGS (5)
  1. MYCOPHENOLATE MOFETIL [Suspect]
     Active Substance: MYCOPHENOLATE MOFETIL
     Indication: Idiopathic pulmonary fibrosis
     Dosage: UNK
     Route: 065
  2. MYCOPHENOLATE MOFETIL [Suspect]
     Active Substance: MYCOPHENOLATE MOFETIL
     Indication: Immunosuppressant drug therapy
  3. PIRFENIDONE [Suspect]
     Active Substance: PIRFENIDONE
     Indication: Idiopathic pulmonary fibrosis
     Dosage: UNK
     Route: 065
  4. CYCLOPHOSPHAMIDE [Concomitant]
     Active Substance: CYCLOPHOSPHAMIDE
     Dosage: UNK
  5. NINTEDANIB [Concomitant]
     Active Substance: NINTEDANIB
     Indication: Idiopathic pulmonary fibrosis
     Dosage: UNK

REACTIONS (3)
  - Dermatitis exfoliative generalised [Unknown]
  - Blister [Unknown]
  - Off label use [Unknown]
